FAERS Safety Report 7384125-7 (Version None)
Quarter: 2011Q1

REPORT INFORMATION
  Report Type: 
  Country: None (occurrence: None)
  Receive Date: 20110330
  Receipt Date: 20110323
  Transmission Date: 20110831
  Serious: Yes (Life-Threatening, Hospitalization, Other)
  Sender: FDA-Public Use
  Company Number: A0919551A

PATIENT
  Age: 53 Year
  Sex: Female
  Weight: 50.9 kg

DRUGS (4)
  1. TREXIMET [Suspect]
     Indication: MIGRAINE
     Dosage: 1TAB SINGLE DOSE
     Route: 048
  2. PRISTIQ [Concomitant]
  3. SYNTHROID [Concomitant]
  4. HYZAAR [Concomitant]

REACTIONS (2)
  - ATRIOVENTRICULAR BLOCK [None]
  - CARDIAC ASSISTANCE DEVICE USER [None]
